FAERS Safety Report 13442447 (Version 1)
Quarter: 2017Q2

REPORT INFORMATION
  Report Type: Spontaneous
  Country: US (occurrence: US)
  Receive Date: 20170413
  Receipt Date: 20170413
  Transmission Date: 20170830
  Serious: No
  Sender: FDA-Public Use
  Company Number: None

PATIENT
  Age: 56 Year
  Sex: Female
  Weight: 56.25 kg

DRUGS (2)
  1. BUPROPION. [Suspect]
     Active Substance: BUPROPION
     Indication: DEPRESSION
     Dosage: ?          QUANTITY:30 TABLET(S);?
     Route: 048
     Dates: start: 20170103, end: 20170413
  2. ALLERGY MEDS [Concomitant]

REACTIONS (4)
  - Headache [None]
  - Product substitution issue [None]
  - Anxiety [None]
  - Drug effect decreased [None]

NARRATIVE: CASE EVENT DATE: 20170401
